FAERS Safety Report 26043534 (Version 2)
Quarter: 2025Q4

REPORT INFORMATION
  Report Type: Spontaneous
  Country: US (occurrence: US)
  Receive Date: 20251113
  Receipt Date: 20251201
  Transmission Date: 20260118
  Serious: No
  Sender: JOHNSON AND JOHNSON
  Company Number: US-JNJFOC-20251150319

PATIENT
  Age: 69 Year
  Sex: Male

DRUGS (1)
  1. TREMFYA [Suspect]
     Active Substance: GUSELKUMAB
     Indication: Crohn^s disease
     Route: 065

REACTIONS (5)
  - Malaise [Unknown]
  - Fatigue [Unknown]
  - Nasopharyngitis [Unknown]
  - Stomatitis [Unknown]
  - Off label use [Unknown]

NARRATIVE: CASE EVENT DATE: 20251104
